FAERS Safety Report 12787780 (Version 1)
Quarter: 2016Q3

REPORT INFORMATION
  Report Type: Spontaneous
  Country: US (occurrence: US)
  Receive Date: 20160927
  Receipt Date: 20160927
  Transmission Date: 20161109
  Serious: Yes (Hospitalization)
  Sender: FDA-Public Use
  Company Number: None

PATIENT
  Age: 56 Year
  Sex: Male
  Weight: 91.4 kg

DRUGS (1)
  1. ACETAMINOPHEN/OXYCODONE [Suspect]
     Active Substance: ACETAMINOPHEN\OXYCODONE HYDROCHLORIDE
     Indication: PAIN
     Route: 048
     Dates: start: 20160730, end: 20160807

REACTIONS (5)
  - Angioedema [None]
  - Rash [None]
  - Urticaria [None]
  - Dyspnoea [None]
  - Pruritus [None]

NARRATIVE: CASE EVENT DATE: 20160804
